FAERS Safety Report 7973829-0 (Version None)
Quarter: 2011Q4

REPORT INFORMATION
  Report Type: 
  Country: None (occurrence: None)
  Receive Date: 20111201
  Receipt Date: 20111123
  Transmission Date: 20120403
  Serious: Yes (Other)
  Sender: FDA-Public Use
  Company Number: 2011SP055091

PATIENT
  Sex: Female

DRUGS (1)
  1. GRACIAL (DESOGESTREL/ETHINYLESTRADIOL /00570801/) [Suspect]
     Indication: CONTRACEPTION
     Dosage: ;;PO
     Route: 048
     Dates: start: 20050101

REACTIONS (4)
  - HYPERTENSION [None]
  - DRUG INEFFECTIVE [None]
  - DYSMENORRHOEA [None]
  - VAGINAL DISCHARGE [None]
